FAERS Safety Report 7253267-9 (Version None)
Quarter: 2011Q1

REPORT INFORMATION
  Report Type: 
  Country: None (occurrence: None)
  Receive Date: 20110129
  Receipt Date: 20100218
  Transmission Date: 20110831
  Serious: No
  Sender: FDA-Public Use
  Company Number: US-ABBOTT-10P-163-0627828-00

PATIENT
  Sex: Female
  Weight: 85.806 kg

DRUGS (25)
  1. PREVACID [Concomitant]
     Indication: GASTRIC DISORDER
  2. CARAFATE [Concomitant]
     Indication: GASTRIC DISORDER
  3. PLAQUENIL [Concomitant]
     Indication: RHEUMATOID ARTHRITIS
  4. METOPROLOL [Concomitant]
     Indication: HYPERTENSION
  5. HUMIRA [Suspect]
     Indication: RHEUMATOID ARTHRITIS
     Dates: start: 20090101
  6. METHOTREXATE [Concomitant]
     Indication: RHEUMATOID ARTHRITIS
  7. PREDNISONE [Concomitant]
     Indication: RHEUMATOID ARTHRITIS
  8. VITAMIN B-12 [Concomitant]
     Indication: VITAMIN SUPPLEMENTATION
  9. CRESTOR [Concomitant]
     Indication: BLOOD CHOLESTEROL INCREASED
  10. PLAVIX [Concomitant]
     Indication: TRANSIENT ISCHAEMIC ATTACK
  11. ASPIRIN [Concomitant]
     Indication: CARDIAC DISORDER
  12. SINGULAIR [Concomitant]
     Indication: ASTHMA
  13. POTASSIUM CHLORIDE [Concomitant]
     Indication: ELECTROLYTE SUBSTITUTION THERAPY
  14. POTASSIUM CITRATE [Concomitant]
     Indication: NEPHROLITHIASIS
  15. MULTIVITAMIN [Concomitant]
     Indication: MACULAR DEGENERATION
  16. EVOXAC [Concomitant]
     Indication: SJOGREN'S SYNDROME
  17. METOPROLOL [Concomitant]
     Indication: HEART RATE INCREASED
  18. XALATAN [Concomitant]
     Indication: GLAUCOMA
  19. ALLOPURINOL [Concomitant]
     Indication: GOUT
  20. ZYRTEC [Concomitant]
     Indication: HYPERSENSITIVITY
  21. TRIAMTERINE [Concomitant]
     Indication: HYPERTENSION
  22. ALBUTEROL [Concomitant]
     Indication: ASTHMA
  23. FOLIC ACID [Concomitant]
     Indication: RHEUMATOID ARTHRITIS
  24. IRON [Concomitant]
     Indication: ANAEMIA
  25. ACTOS [Concomitant]
     Indication: DIABETES MELLITUS

REACTIONS (1)
  - POOR QUALITY DRUG ADMINISTERED [None]
